FAERS Safety Report 4345696-8 (Version None)
Quarter: 2004Q2

REPORT INFORMATION
  Report Type: 
  Country: None (occurrence: None)
  Receive Date: 20040421
  Receipt Date: 20040410
  Transmission Date: 20050107
  Serious: Yes (Other)
  Sender: FDA-Public Use
  Company Number: 2004016355

PATIENT
  Age: 71 Year
  Sex: Female

DRUGS (2)
  1. NEURONTIN [Suspect]
     Indication: BACK PAIN
     Dosage: 900 MG (TID)
     Dates: start: 20040212
  2. EFLORNITHINE HYDROCHLORIDE (EFLORNITHINE HYDROCHLORIDE) [Concomitant]

REACTIONS (3)
  - EYE DISORDER [None]
  - VISUAL ACUITY REDUCED [None]
  - VISUAL DISTURBANCE [None]
